FAERS Safety Report 4877137-6 (Version None)
Quarter: 2005Q4

REPORT INFORMATION
  Report Type: 
  Country: None (occurrence: None)
  Receive Date: 20051206
  Receipt Date: 20050825
  Transmission Date: 20060501
  Serious: No
  Sender: FDA-Public Use
  Company Number: USA0508106391

PATIENT
  Age: 46 Year
  Sex: Female

DRUGS (2)
  1. CYMBALTA [Suspect]
     Indication: DEPRESSION
     Dosage: 60 MG
     Dates: start: 20050824
  2. ESZOPICLONE [Concomitant]

REACTIONS (2)
  - NERVOUSNESS [None]
  - RASH PRURITIC [None]
